FAERS Safety Report 7125528-5 (Version None)
Quarter: 2010Q4

REPORT INFORMATION
  Report Type: 
  Country: None (occurrence: None)
  Receive Date: 20101129
  Receipt Date: 20101125
  Transmission Date: 20110411
  Serious: Yes (Death)
  Sender: FDA-Public Use
  Company Number: MX-SANOFI-AVENTIS-2010SA071604

PATIENT
  Age: 83 Year
  Sex: Male

DRUGS (1)
  1. PLAVIX [Suspect]
     Indication: ANTIPLATELET THERAPY
     Route: 048
     Dates: start: 20090101

REACTIONS (2)
  - MEDICATION ERROR [None]
  - RESPIRATORY ARREST [None]
